FAERS Safety Report 10029788 (Version 1)
Quarter: 2014Q1

REPORT INFORMATION
  Report Type: Spontaneous
  Country: US (occurrence: None)
  Receive Date: 20140319
  Receipt Date: 20140319
  Transmission Date: 20141002
  Serious: Yes (Other)
  Sender: FDA-Public Use
  Company Number: 2014AP001853

PATIENT
  Age: 63 Year
  Sex: Female
  Weight: 91.2 kg

DRUGS (1)
  1. FERRIPROX [Suspect]
     Indication: HAEMOCHROMATOSIS
     Route: 048
     Dates: start: 201303, end: 201403

REACTIONS (2)
  - Neutropenia [None]
  - Bacterial infection [None]
